FAERS Safety Report 9684667 (Version 1)
Quarter: 2013Q4

REPORT INFORMATION
  Report Type: Spontaneous
  Country: FR (occurrence: FR)
  Receive Date: 20131112
  Receipt Date: 20131112
  Transmission Date: 20140711
  Serious: Yes (Other)
  Sender: FDA-Public Use
  Company Number: FR-ELI_LILLY_AND_COMPANY-FR201310010211

PATIENT
  Age: 72 Year
  Sex: Female

DRUGS (2)
  1. FORSTEO [Suspect]
     Indication: OSTEOPOROSIS
     Dosage: UNK
     Route: 058
     Dates: start: 20130301, end: 20130625
  2. FORSTEO [Suspect]
     Indication: SPINAL FRACTURE

REACTIONS (6)
  - Skin exfoliation [Not Recovered/Not Resolved]
  - Xerosis [Not Recovered/Not Resolved]
  - Dermatitis contact [Not Recovered/Not Resolved]
  - Skin fissures [Not Recovered/Not Resolved]
  - Sensory loss [Not Recovered/Not Resolved]
  - Asthenia [Not Recovered/Not Resolved]
